FAERS Safety Report 9206457 (Version 2)
Quarter: 2013Q3

REPORT INFORMATION
  Report Type: Spontaneous
  Country: US (occurrence: US)
  Receive Date: 20130403
  Receipt Date: 20130820
  Transmission Date: 20140515
  Serious: Yes (Hospitalization)
  Sender: FDA-Public Use
  Company Number: US-PFIZER INC-2013103027

PATIENT
  Age: 60 Year
  Sex: Female
  Weight: 62.13 kg

DRUGS (3)
  1. REVATIO [Suspect]
     Indication: HYPERTENSION
     Dosage: 20 MG, 3X/DAY
     Dates: start: 201303
  2. SYNTHROID [Concomitant]
     Indication: THYROID DISORDER
     Dosage: UNK
  3. FENOFIBRATE [Concomitant]
     Indication: BLOOD CHOLESTEROL ABNORMAL
     Dosage: UNK, 1X/DAY (AT NIGHT)

REACTIONS (7)
  - Blood pressure abnormal [Unknown]
  - Blood sodium decreased [Unknown]
  - Anaemia [Unknown]
  - Thrombosis [Unknown]
  - Drug ineffective [Unknown]
  - Heart rate abnormal [Unknown]
  - Extrasystoles [Unknown]
